FAERS Safety Report 11261786 (Version 1)
Quarter: 2015Q3

REPORT INFORMATION
  Report Type: Spontaneous
  Country: US (occurrence: US)
  Receive Date: 20150710
  Receipt Date: 20150710
  Transmission Date: 20151125
  Serious: Yes (Hospitalization, Congenital Anomaly, Other)
  Sender: FDA-Public Use
  Company Number: US-PFIZER INC-2015225494

PATIENT
  Sex: Female
  Weight: 2 kg

DRUGS (4)
  1. ZOLOFT [Suspect]
     Active Substance: SERTRALINE HYDROCHLORIDE
     Dosage: 50 MG, DAILY
     Route: 064
     Dates: start: 20130703
  2. ZOLOFT [Suspect]
     Active Substance: SERTRALINE HYDROCHLORIDE
     Indication: DEPRESSION
     Dosage: 25 MG, DAILY
     Route: 064
     Dates: start: 20130227, end: 201303
  3. ZOLOFT [Suspect]
     Active Substance: SERTRALINE HYDROCHLORIDE
     Dosage: 50 MG, DAILY
     Route: 064
     Dates: start: 201303
  4. PRENATAL VITAMINS [Concomitant]
     Active Substance: VITAMINS
     Dosage: UNK
     Route: 064
     Dates: start: 20130227

REACTIONS (10)
  - Heart disease congenital [Unknown]
  - Trisomy 21 [Unknown]
  - Atrial septal defect [Unknown]
  - Patent ductus arteriosus [Unknown]
  - Polydactyly [Unknown]
  - Congenital nose malformation [Unknown]
  - Maternal exposure during pregnancy [Unknown]
  - Congenital hypothyroidism [Unknown]
  - Persistent foetal circulation [Unknown]
  - Pelvic kidney [Unknown]

NARRATIVE: CASE EVENT DATE: 20130818
